FAERS Safety Report 9442231 (Version 2)
Quarter: 2013Q4

REPORT INFORMATION
  Report Type: Spontaneous
  Country: DK (occurrence: FR)
  Receive Date: 20130806
  Receipt Date: 20131017
  Transmission Date: 20140711
  Serious: Yes (Hospitalization)
  Sender: FDA-Public Use
  Company Number: FR-FRI-1000047499

PATIENT
  Age: 65 Year
  Sex: Female

DRUGS (12)
  1. ESCITALOPRAM [Suspect]
     Dosage: 10 MG
     Route: 048
     Dates: start: 201212, end: 201304
  2. DIAMICRON [Suspect]
     Indication: DIABETES MELLITUS
     Dosage: 120 MG
     Route: 048
     Dates: end: 201304
  3. EUCREAS [Suspect]
     Indication: DIABETES MELLITUS
     Dosage: 2 DF
     Route: 048
     Dates: end: 201304
  4. COAPROVEL [Suspect]
     Indication: HYPERTENSION
     Dosage: 300/12.5 MG
     Route: 048
  5. AMLOR [Suspect]
     Indication: HYPERTENSION
     Dosage: 1 DF
     Route: 048
  6. TAHOR [Suspect]
     Indication: HYPERCHOLESTEROLAEMIA
     Dosage: 1 DF
     Route: 048
     Dates: end: 201304
  7. LEVOTHYROX [Suspect]
     Indication: HYPOTHYROIDISM
     Dosage: 125 MCG
     Route: 048
  8. IXPRIM [Suspect]
     Indication: NECK PAIN
     Route: 048
     Dates: start: 20130314, end: 2013
  9. DOLIPRANE [Suspect]
     Indication: NECK PAIN
     Route: 048
     Dates: start: 20130312, end: 2013
  10. VOLTARENE [Suspect]
     Indication: NECK PAIN
     Route: 003
     Dates: start: 20130305, end: 2013
  11. VOLTARENE LP [Suspect]
     Indication: NECK PAIN
     Route: 048
     Dates: start: 20130305, end: 2013
  12. LAMALINE [Suspect]
     Indication: NECK PAIN
     Dates: start: 20130312, end: 2013

REACTIONS (3)
  - Hepatitis cholestatic [Recovered/Resolved]
  - Pruritus [Recovered/Resolved]
  - Jaundice [Recovered/Resolved]
